FAERS Safety Report 26044140 (Version 2)
Quarter: 2025Q4

REPORT INFORMATION
  Report Type: Spontaneous
  Country: EU (occurrence: EU)
  Receive Date: 20251114
  Receipt Date: 20251121
  Transmission Date: 20260119
  Serious: Yes (Other)
  Sender: SANOFI AVENTIS
  Company Number: EU-SA-2025SA337688

PATIENT
  Age: 39 Year
  Sex: Male

DRUGS (1)
  1. DUPIXENT [Suspect]
     Active Substance: DUPILUMAB
     Indication: Dermatitis atopic
     Dosage: 600 MG, 1X
     Dates: start: 20251029, end: 20251029

REACTIONS (9)
  - Superinfection [Unknown]
  - Peripheral swelling [Recovered/Resolved]
  - Asthenia [Unknown]
  - Fatigue [Unknown]
  - Chills [Unknown]
  - Skin erosion [Unknown]
  - Pruritus [Recovering/Resolving]
  - Oral herpes [Unknown]
  - Lip blister [Unknown]

NARRATIVE: CASE EVENT DATE: 20250101
